FAERS Safety Report 4357782-7 (Version None)
Quarter: 2004Q2

REPORT INFORMATION
  Report Type: 
  Country: None (occurrence: None)
  Receive Date: 20040512
  Receipt Date: 20040427
  Transmission Date: 20050107
  Serious: Yes (Hospitalization)
  Sender: FDA-Public Use
  Company Number: HQWYE214820FEB04

PATIENT
  Age: 27 Year
  Sex: Female
  Weight: 79 kg

DRUGS (2)
  1. NORPLANT SYSTEM [Suspect]
     Indication: CONTRACEPTION
     Dosage: 6 CAPSULES SUBCUTANEOUS
     Route: 058
     Dates: start: 19990909, end: 20040218
  2. ZOLOFT [Suspect]
     Indication: DEPRESSION
     Dosage: 25 TO 100 MG, ORAL
     Route: 048

REACTIONS (8)
  - BIPOLAR DISORDER [None]
  - DEPRESSION [None]
  - DRUG INEFFECTIVE [None]
  - FAMILY STRESS [None]
  - HYPERTENSION [None]
  - MANIA [None]
  - MIGRAINE [None]
  - WEIGHT INCREASED [None]
